FAERS Safety Report 6580664-7 (Version None)
Quarter: 2010Q1

REPORT INFORMATION
  Report Type: 
  Country: None (occurrence: None)
  Receive Date: 20100212
  Receipt Date: 20100203
  Transmission Date: 20100710
  Serious: Yes (Hospitalization, Other)
  Sender: FDA-Public Use
  Company Number: BR-ABBOTT-10P-020-0624247-00

PATIENT
  Sex: Female
  Weight: 67 kg

DRUGS (4)
  1. HUMIRA [Suspect]
     Indication: RHEUMATOID ARTHRITIS
     Route: 058
     Dates: start: 20090101
  2. SODIUM ALENDRONATE, PAROXETINE, MELOXICAM, CHLOROQUINE DIPHOSPHATE [Concomitant]
     Indication: RHEUMATOID ARTHRITIS
     Dosage: SODIUM ALENDRONATE 70MG, PAROXETINE 100MG, MELOXICAM 15MG, CHLOROQUINE DIPHOSPHATE 50MG
     Route: 048
     Dates: start: 20030101
  3. NORTRIPTYLINE10MG,CYCLOBENZAPRINE2.5MG,NIMESULIDE100MG,PREDNISONE 6MG [Concomitant]
     Indication: RHEUMATOID ARTHRITIS
     Route: 048
     Dates: start: 20030101
  4. AMILORIDE HYDROCHLORIDE 2.5MG, HYDROCHLOROTHIAZIDE 25MG (MODURETIC) [Concomitant]
     Indication: DIURETIC THERAPY
     Route: 048
     Dates: start: 20091001

REACTIONS (5)
  - CEREBROVASCULAR ACCIDENT [None]
  - ERYSIPELAS [None]
  - HYPOAESTHESIA [None]
  - LISTLESS [None]
  - ORAL DISORDER [None]
